FAERS Safety Report 9679974 (Version 1)
Quarter: 2013Q4

REPORT INFORMATION
  Report Type: Spontaneous
  Country: FR (occurrence: FR)
  Receive Date: 20131110
  Receipt Date: 20131110
  Transmission Date: 20140711
  Serious: Yes (Hospitalization)
  Sender: FDA-Public Use
  Company Number: PHHY2013FR126749

PATIENT
  Age: 44 Year
  Sex: Male

DRUGS (2)
  1. TRILEPTAL [Suspect]
     Indication: OLIGODENDROGLIOMA
     Dosage: 300 MG, UNK
     Dates: start: 2005, end: 201309
  2. TEMODAL [Concomitant]
     Indication: OLIGODENDROGLIOMA
     Dosage: UNK UKN, UNK
     Dates: start: 201307, end: 201307

REACTIONS (1)
  - Autoimmune haemolytic anaemia [Recovering/Resolving]
